FAERS Safety Report 8824008 (Version 1)
Quarter: 2012Q4

REPORT INFORMATION
  Report Type: Report from Study
  Country: DK (occurrence: DK)
  Receive Date: 20121003
  Receipt Date: 20121003
  Transmission Date: 20130627
  Serious: Yes (Hospitalization)
  Sender: FDA-Public Use
  Company Number: DK-BAXTER-2012BAX018003

PATIENT
  Age: 65 Year
  Sex: Female
  Weight: 74 kg

DRUGS (23)
  1. SENDOXAN [Suspect]
     Indication: DIFFUSE LARGE B-CELL LYMPHOMA
     Route: 042
     Dates: start: 20120207, end: 20120207
  2. SENDOXAN [Suspect]
     Route: 042
     Dates: start: 20120305, end: 20120305
  3. RITUXIMAB [Suspect]
     Indication: DIFFUSE LARGE B-CELL LYMPHOMA
     Route: 042
     Dates: start: 20120207, end: 20120207
  4. RITUXIMAB [Suspect]
     Route: 042
     Dates: start: 20120213, end: 20120213
  5. RITUXIMAB [Suspect]
     Route: 042
     Dates: start: 20120305, end: 20120305
  6. DOXORUBICIN [Suspect]
     Indication: DIFFUSE LARGE B-CELL LYMPHOMA
     Route: 042
     Dates: start: 20120207, end: 20120207
  7. DOXORUBICIN [Suspect]
     Route: 042
     Dates: start: 20120305, end: 20120305
  8. VINCRISTINE [Suspect]
     Indication: DIFFUSE LARGE B-CELL LYMPHOMA
     Route: 042
     Dates: start: 20120207, end: 20120207
  9. VINCRISTINE [Suspect]
     Route: 042
     Dates: start: 20120305, end: 20120305
  10. PREDNISONE [Suspect]
     Indication: DIFFUSE LARGE B-CELL LYMPHOMA
     Route: 048
     Dates: start: 20120207
  11. PREDNISONE [Suspect]
     Route: 048
     Dates: start: 20120305
  12. PREDNISONE [Suspect]
     Route: 048
     Dates: start: 20120227, end: 20120227
  13. PREDNISONE [Suspect]
     Route: 048
     Dates: start: 20120220, end: 20120224
  14. PEGFILGRASTIM [Suspect]
     Indication: DIFFUSE LARGE B-CELL LYMPHOMA
     Route: 058
     Dates: start: 20120210, end: 20120210
  15. PEGFILGRASTIM [Suspect]
     Route: 058
     Dates: start: 20120223
  16. PEGFILGRASTIM [Suspect]
     Route: 058
     Dates: start: 20120308
  17. LANSOPRAZOLE [Concomitant]
     Indication: DRUG USE FOR UNKNOWN INDICATION
     Route: 048
     Dates: start: 20120113
  18. LANSOPRAZOLE [Concomitant]
     Route: 048
     Dates: start: 20120305
  19. ACICLOVIR [Concomitant]
     Indication: INFECTION
     Route: 048
     Dates: start: 20120207
  20. ACICLOVIR [Concomitant]
     Route: 048
     Dates: start: 20120220, end: 20120618
  21. BACTRIM [Concomitant]
     Indication: INFECTION
     Dosage: 400/80 MG
     Route: 048
     Dates: start: 20120207
  22. ONDANSETRON [Concomitant]
     Indication: NAUSEA
     Route: 048
     Dates: start: 20120207, end: 20120208
  23. DOLOL [Concomitant]
     Indication: BACK PAIN
     Dates: start: 20120525

REACTIONS (3)
  - Pulmonary embolism [Recovered/Resolved]
  - Back pain [Not Recovered/Not Resolved]
  - Neck pain [None]
